FAERS Safety Report 12201831 (Version 1)
Quarter: 2016Q1

REPORT INFORMATION
  Report Type: Spontaneous
  Country: IT (occurrence: IT)
  Receive Date: 20160322
  Receipt Date: 20160322
  Transmission Date: 20160526
  Serious: Yes (Other)
  Sender: FDA-Public Use
  Company Number: IT-SA-2016SA054852

PATIENT
  Age: 66 Year
  Sex: Female

DRUGS (4)
  1. COVERLAM [Suspect]
     Active Substance: AMLODIPINE BESYLATE\PERINDOPRIL ARGININE
     Indication: BLOOD PRESSURE INCREASED
     Route: 048
     Dates: start: 20151016, end: 20151016
  2. XANAX [Concomitant]
     Active Substance: ALPRAZOLAM
  3. ATENOL [Concomitant]
     Active Substance: ATENOLOL
     Dosage: STRENGTH: 100 MG
  4. LASIX [Suspect]
     Active Substance: FUROSEMIDE
     Indication: BLOOD PRESSURE INCREASED
     Route: 048
     Dates: start: 20151016, end: 20151016

REACTIONS (1)
  - Angioedema [Recovering/Resolving]

NARRATIVE: CASE EVENT DATE: 20151016
